FAERS Safety Report 12898270 (Version 1)
Quarter: 2016Q4

REPORT INFORMATION
  Report Type: Not Available
  Country: US (occurrence: US)
  Receive Date: 20161031
  Receipt Date: 20161031
  Transmission Date: 20170207
  Serious: Yes (Other)
  Sender: FDA-Public Use
  Company Number: US-BEAUTYAVENUES-2016-US-008721

PATIENT
  Age: 14 Year
  Sex: Male

DRUGS (1)
  1. ANTIBACTERIAL HAND SANITIZER GEL [Suspect]
     Active Substance: ALCOHOL
     Dosage: USED ONCE
     Route: 061
     Dates: start: 20161010

REACTIONS (2)
  - Burns second degree [Unknown]
  - Accident [Unknown]

NARRATIVE: CASE EVENT DATE: 20161010
